FAERS Safety Report 19050179 (Version 1)
Quarter: 2021Q1

REPORT INFORMATION
  Report Type: Spontaneous
  Country: US (occurrence: US)
  Receive Date: 20210323
  Receipt Date: 20210323
  Transmission Date: 20210420
  Serious: No
  Sender: FDA-Public Use
  Company Number: US-GALDERMA-US2021001653

PATIENT
  Age: 13 Year
  Sex: Female

DRUGS (7)
  1. PROACTIV MD DAILY OIL CONTROL SPF 30 [Suspect]
     Active Substance: AVOBENZONE\OCTISALATE\OCTOCRYLENE
     Indication: ACNE
  2. PROACTIV MD DEEP CLEANSING FACE WASH [Concomitant]
     Active Substance: COSMETICS
     Indication: SEBORRHOEA
     Route: 061
     Dates: start: 20210108, end: 20210112
  3. PROACTIV MD ADAPALENE ACNE TREATMENT [Suspect]
     Active Substance: ADAPALENE
     Indication: ACNE
  4. VITAMIN C [Concomitant]
     Active Substance: ASCORBIC ACID
     Indication: PRODUCT USED FOR UNKNOWN INDICATION
     Route: 065
  5. PROACTIV MD ADAPALENE ACNE TREATMENT [Suspect]
     Active Substance: ADAPALENE
     Indication: SEBORRHOEA
     Dosage: 0.1%
     Route: 061
     Dates: start: 20210108, end: 20210112
  6. PROACTIV MD DAILY OIL CONTROL SPF 30 [Suspect]
     Active Substance: AVOBENZONE\OCTISALATE\OCTOCRYLENE
     Indication: SEBORRHOEA
     Route: 061
     Dates: start: 20210108, end: 20210112
  7. PROACTIV MD DEEP CLEANSING FACE WASH [Concomitant]
     Active Substance: COSMETICS
     Indication: ACNE

REACTIONS (7)
  - Condition aggravated [Recovering/Resolving]
  - Pain of skin [Recovering/Resolving]
  - Dry skin [Recovering/Resolving]
  - Skin fissures [Recovering/Resolving]
  - Skin irritation [Recovering/Resolving]
  - Erythema [Recovering/Resolving]
  - Skin swelling [Recovering/Resolving]

NARRATIVE: CASE EVENT DATE: 20210110
